FAERS Safety Report 12659288 (Version 1)
Quarter: 2016Q3

REPORT INFORMATION
  Report Type: Spontaneous
  Country: US (occurrence: US)
  Receive Date: 20160817
  Receipt Date: 20160817
  Transmission Date: 20161109
  Serious: Yes (Other)
  Sender: FDA-Public Use
  Company Number: US-BAYER-2016-159136

PATIENT
  Sex: Male

DRUGS (1)
  1. ALEVE [Suspect]
     Active Substance: NAPROXEN SODIUM

REACTIONS (2)
  - Dizziness [Not Recovered/Not Resolved]
  - Haematochezia [Recovered/Resolved]
